FAERS Safety Report 5608817-2 (Version None)
Quarter: 2008Q1

REPORT INFORMATION
  Report Type: 
  Country: None (occurrence: None)
  Receive Date: 20080129
  Receipt Date: 20080129
  Transmission Date: 20080703
  Serious: Yes (Disabling)
  Sender: FDA-Public Use
  Company Number: None

PATIENT
  Sex: Female
  Weight: 66.2252 kg

DRUGS (1)
  1. VYTORIN [Suspect]
     Indication: BLOOD GLUCOSE INCREASED
     Dosage: 10-20 MG 1 A DAY MOUTH
     Route: 048
     Dates: start: 20070201, end: 20070501

REACTIONS (3)
  - MUSCULAR WEAKNESS [None]
  - NERVE INJURY [None]
  - NEUROPATHY PERIPHERAL [None]
